FAERS Safety Report 7283091-2 (Version None)
Quarter: 2011Q1

REPORT INFORMATION
  Report Type: 
  Country: None (occurrence: None)
  Receive Date: 20110209
  Receipt Date: 20110131
  Transmission Date: 20110831
  Serious: Yes (Hospitalization)
  Sender: FDA-Public Use
  Company Number: JP-ROCHE-749379

PATIENT
  Sex: Male
  Weight: 77 kg

DRUGS (20)
  1. PREDNISOLONE [Concomitant]
     Route: 048
     Dates: start: 20101202, end: 20101224
  2. PREDNISOLONE [Concomitant]
     Route: 048
     Dates: start: 20101225
  3. TACROLIMUS [Concomitant]
     Indication: STILL'S DISEASE ADULT ONSET
     Route: 048
     Dates: end: 20101104
  4. LOXONIN [Concomitant]
     Route: 048
  5. METHOTREXATE [Concomitant]
     Route: 048
  6. PREDNISOLONE [Concomitant]
     Route: 048
     Dates: start: 20101007, end: 20101020
  7. ACTEMRA [Suspect]
     Route: 042
     Dates: start: 20101104, end: 20101202
  8. BAKTAR [Concomitant]
     Route: 048
  9. PREDNISOLONE [Concomitant]
     Route: 048
     Dates: start: 20100918, end: 20101006
  10. PREDNISOLONE [Concomitant]
     Dosage: DOSE FROM: PERORAL AGENT
     Route: 048
     Dates: end: 20100826
  11. PREDNISOLONE [Concomitant]
     Route: 048
     Dates: start: 20101104, end: 20101201
  12. ACTEMRA [Suspect]
     Indication: STILL'S DISEASE ADULT ONSET
     Route: 042
     Dates: start: 20100810, end: 20101224
  13. PREDNISOLONE [Concomitant]
     Route: 048
     Dates: start: 20100827, end: 20100917
  14. TRYPTANOL [Concomitant]
     Route: 048
  15. ACTONEL [Concomitant]
     Route: 048
  16. METHOTREXATE [Concomitant]
     Route: 048
  17. PREDNISOLONE [Concomitant]
     Route: 048
     Dates: start: 20101021, end: 20101103
  18. PARIET [Concomitant]
     Route: 048
  19. METHYCOBAL [Concomitant]
     Route: 048
  20. MUCOSTA [Concomitant]
     Route: 048

REACTIONS (2)
  - SUBCUTANEOUS HAEMATOMA [None]
  - DRUG ERUPTION [None]
